FAERS Safety Report 4784115-4 (Version None)
Quarter: 2005Q3

REPORT INFORMATION
  Report Type: 
  Country: None (occurrence: None)
  Receive Date: 20050930
  Receipt Date: 20050621
  Transmission Date: 20060218
  Serious: Yes (Other)
  Sender: FDA-Public Use
  Company Number: US-GLAXOSMITHKLINE-A0563947A

PATIENT
  Age: 4 Year
  Sex: Male
  Weight: 18.2 kg

DRUGS (1)
  1. FLOVENT [Suspect]
     Indication: ASTHMA
     Dosage: 110MCG SINGLE DOSE
     Route: 055
     Dates: start: 20050617, end: 20050617

REACTIONS (1)
  - RASH [None]
